FAERS Safety Report 13164056 (Version 2)
Quarter: 2017Q2

REPORT INFORMATION
  Report Type: Spontaneous
  Country: CH (occurrence: DE)
  Receive Date: 20170130
  Receipt Date: 20170620
  Transmission Date: 20170830
  Serious: Yes (Other)
  Sender: FDA-Public Use
  Company Number: CH-LPDUSPRD-20170088

PATIENT
  Age: 35 Year
  Sex: Female
  Weight: 70 kg

DRUGS (1)
  1. FERINJECT [Suspect]
     Active Substance: FERRIC CARBOXYMALTOSE
     Dosage: 500 MG
     Route: 041
     Dates: start: 20161220, end: 20161220

REACTIONS (2)
  - Epilepsy [Unknown]
  - Product preparation error [Recovered/Resolved]

NARRATIVE: CASE EVENT DATE: 20161220
